FAERS Safety Report 11753466 (Version 4)
Quarter: 2016Q2

REPORT INFORMATION
  Report Type: Spontaneous
  Country: GB (occurrence: GB)
  Receive Date: 20151119
  Receipt Date: 20160630
  Transmission Date: 20160815
  Serious: Yes (Hospitalization)
  Sender: FDA-Public Use
  Company Number: GB-ROCHE-1663622

PATIENT
  Sex: Male

DRUGS (7)
  1. CAPECITABINE. [Suspect]
     Active Substance: CAPECITABINE
     Indication: PRODUCT USED FOR UNKNOWN INDICATION
     Route: 065
  2. AVASTIN [Suspect]
     Active Substance: BEVACIZUMAB
     Indication: PRODUCT USED FOR UNKNOWN INDICATION
     Route: 042
  3. NEULASTA [Concomitant]
     Active Substance: PEGFILGRASTIM
  4. FOLINIC ACID [Concomitant]
     Active Substance: LEUCOVORIN
  5. DOMPERIDONE [Concomitant]
     Active Substance: DOMPERIDONE
  6. OXALIPLATIN. [Concomitant]
     Active Substance: OXALIPLATIN
  7. FLUOROURACIL. [Concomitant]
     Active Substance: FLUOROURACIL

REACTIONS (6)
  - Neuropathy peripheral [Unknown]
  - Diarrhoea [Unknown]
  - Lower respiratory tract infection [Unknown]
  - Obstruction [Unknown]
  - Insomnia [Unknown]
  - Fatigue [Unknown]
